FAERS Safety Report 7768710-6 (Version None)
Quarter: 2011Q3

REPORT INFORMATION
  Report Type: 
  Country: None (occurrence: None)
  Receive Date: 20110922
  Receipt Date: 20110418
  Transmission Date: 20111222
  Serious: Yes (Other)
  Sender: FDA-Public Use
  Company Number: US-ASTRAZENECA-2007UW04344

PATIENT
  Age: 44 Year
  Sex: Male
  Weight: 95.7 kg

DRUGS (7)
  1. HALDOL [Concomitant]
     Dates: start: 19900101
  2. SEROQUEL [Suspect]
     Indication: BIPOLAR DISORDER
     Route: 048
     Dates: start: 20040101, end: 20100101
  3. SEROQUEL [Suspect]
     Indication: DEPRESSION
     Route: 048
     Dates: start: 20040101, end: 20100101
  4. STELAZINE [Concomitant]
     Dates: start: 19940101
  5. NAVANE [Concomitant]
     Dates: start: 19860101
  6. RISPERDAL [Concomitant]
     Dosage: 1 - 5 MG QD
     Dates: start: 20010101
  7. ABILIFY [Concomitant]
     Dates: start: 20090101

REACTIONS (5)
  - OBESITY [None]
  - HYPERLIPIDAEMIA [None]
  - BLOOD CHOLESTEROL INCREASED [None]
  - ERECTILE DYSFUNCTION [None]
  - TYPE 2 DIABETES MELLITUS [None]
